FAERS Safety Report 7841823-6 (Version None)
Quarter: 2011Q4

REPORT INFORMATION
  Report Type: 
  Country: None (occurrence: None)
  Receive Date: 20111019
  Receipt Date: 20111004
  Transmission Date: 20120403
  Serious: Yes (Hospitalization)
  Sender: FDA-Public Use
  Company Number: 2011SP046969

PATIENT
  Age: 57 Year
  Sex: Male
  Weight: 127 kg

DRUGS (2)
  1. REBETOL [Suspect]
     Indication: HEPATITIS C
     Dosage: 600 MG; BID
     Dates: start: 20110420
  2. PEG-INTRON [Suspect]
     Indication: HEPATITIS C
     Dosage: 150 MCG; QW
     Dates: start: 20110420

REACTIONS (6)
  - HEPATIC ENCEPHALOPATHY [None]
  - MALAISE [None]
  - PERFORMANCE STATUS DECREASED [None]
  - HYPOGLYCAEMIA [None]
  - DEPRESSED LEVEL OF CONSCIOUSNESS [None]
  - GASTROENTERITIS [None]
